FAERS Safety Report 8585491-7 (Version None)
Quarter: 2012Q3

REPORT INFORMATION
  Report Type: 
  Country: None (occurrence: None)
  Receive Date: 20120810
  Receipt Date: 20120608
  Transmission Date: 20120928
  Serious: No
  Sender: FDA-Public Use
  Company Number: US-GLAXOSMITHKLINE-A0980637A

PATIENT
  Sex: Female

DRUGS (9)
  1. SINEMET [Concomitant]
  2. SELEGILINE [Concomitant]
  3. FIORICET [Concomitant]
  4. LORAZEPAM [Concomitant]
  5. GABAPENTIN [Concomitant]
  6. TRAZODONE HYDROCHLORIDE [Concomitant]
  7. REQUIP XL [Suspect]
     Indication: PARKINSON'S DISEASE
     Dosage: 2TAB THREE TIMES PER DAY
     Route: 048
  8. THYROID TAB [Concomitant]
  9. CYMBALTA [Concomitant]

REACTIONS (5)
  - MEDICATION RESIDUE [None]
  - RESTLESSNESS [None]
  - DYSKINESIA [None]
  - RESTLESS LEGS SYNDROME [None]
  - DRUG ADMINISTRATION ERROR [None]
